FAERS Safety Report 19524791 (Version 1)
Quarter: 2021Q3

REPORT INFORMATION
  Report Type: Spontaneous
  Country: US (occurrence: US)
  Receive Date: 20210712
  Receipt Date: 20210712
  Transmission Date: 20211014
  Serious: Yes (Hospitalization)
  Sender: FDA-Public Use
  Company Number: None

PATIENT
  Age: 68 Year
  Sex: Male
  Weight: 100 kg

DRUGS (17)
  1. ATORVASTATIN [Concomitant]
     Active Substance: ATORVASTATIN
  2. GABAPENTIN. [Concomitant]
     Active Substance: GABAPENTIN
  3. ALLOPURINOL. [Concomitant]
     Active Substance: ALLOPURINOL
  4. HYDROMORPHONE [Concomitant]
     Active Substance: HYDROMORPHONE
  5. ISOSORBIDE MONONITRATE. [Concomitant]
     Active Substance: ISOSORBIDE MONONITRATE
  6. METOPROLOL SUCCINATE. [Concomitant]
     Active Substance: METOPROLOL SUCCINATE
  7. FENTANYL TRANSDERMAL SYSTEM [Suspect]
     Active Substance: FENTANYL
     Indication: LUMBAR SPINAL STENOSIS
     Route: 062
  8. CEPHALEXIN. [Concomitant]
     Active Substance: CEPHALEXIN
  9. FUROSEMIDE. [Concomitant]
     Active Substance: FUROSEMIDE
  10. CARBIDOPA?LEVODOPA [Concomitant]
     Active Substance: CARBIDOPA\LEVODOPA
  11. DONEPEZIL. [Concomitant]
     Active Substance: DONEPEZIL
  12. HYDROCODONE [Concomitant]
     Active Substance: HYDROCODONE
  13. DULOXETINE CAPSULE [Suspect]
     Active Substance: DULOXETINE
     Route: 048
  14. LEFLUNOMIDE. [Concomitant]
     Active Substance: LEFLUNOMIDE
  15. PRAMIPEXOLE. [Concomitant]
     Active Substance: PRAMIPEXOLE
  16. SPIRONOLACTONE. [Concomitant]
     Active Substance: SPIRONOLACTONE
  17. TAMSULOSIN [Concomitant]
     Active Substance: TAMSULOSIN

REACTIONS (15)
  - Muscle spasms [None]
  - Blood magnesium increased [None]
  - Asthenia [None]
  - Blood glucose increased [None]
  - Blood creatinine increased [None]
  - Serotonin syndrome [None]
  - Confusional state [None]
  - Dyskinesia [None]
  - Oxygen saturation decreased [None]
  - Dehydration [None]
  - Pain [None]
  - Gait disturbance [None]
  - Blood urea increased [None]
  - Blood potassium increased [None]
  - Glomerular filtration rate decreased [None]
